FAERS Safety Report 9115692 (Version 1)
Quarter: 2013Q1

REPORT INFORMATION
  Report Type: Spontaneous
  Country: CA (occurrence: None)
  Receive Date: 20130129
  Receipt Date: 20130129
  Transmission Date: 20140127
  Serious: Yes (Other)
  Sender: FDA-Public Use
  Company Number: IMP_06145_2013

PATIENT
  Age: 24 Month
  Sex: Male

DRUGS (1)
  1. CLONIDINE [Suspect]
     Indication: ACCIDENTAL EXPOSURE TO PRODUCT BY CHILD
     Dosage: (DF  [ACCIDENTAL INGESTION])

REACTIONS (8)
  - Accidental exposure to product by child [None]
  - Toxicity to various agents [None]
  - Lethargy [None]
  - Hypotension [None]
  - Miosis [None]
  - Hypotonia [None]
  - Respiratory depression [None]
  - No therapeutic response [None]
